FAERS Safety Report 18654017 (Version 1)
Quarter: 2020Q4

REPORT INFORMATION
  Report Type: Spontaneous
  Country: IT (occurrence: IT)
  Receive Date: 20201223
  Receipt Date: 20201223
  Transmission Date: 20210114
  Serious: Yes (Hospitalization)
  Sender: FDA-Public Use
  Company Number: NVSC2020IT335026

PATIENT
  Age: 17 Year
  Sex: Female

DRUGS (2)
  1. LORAZEPAM. [Suspect]
     Active Substance: LORAZEPAM
     Indication: SUICIDE ATTEMPT
     Dosage: 5 MG
     Route: 048
     Dates: start: 20201209, end: 20201209
  2. CLOZAPINE. [Suspect]
     Active Substance: CLOZAPINE
     Indication: SUICIDE ATTEMPT
     Dosage: 700 MG
     Route: 048
     Dates: start: 20201209, end: 20201209

REACTIONS (4)
  - Overdose [Unknown]
  - Hypertension [Unknown]
  - Sopor [Unknown]
  - Suicide attempt [Unknown]

NARRATIVE: CASE EVENT DATE: 20201209
